FAERS Safety Report 12235208 (Version 2)
Quarter: 2016Q2

REPORT INFORMATION
  Report Type: Spontaneous
  Country: US (occurrence: US)
  Receive Date: 20160404
  Receipt Date: 20160624
  Transmission Date: 20160815
  Serious: Yes (Other)
  Sender: FDA-Public Use
  Company Number: US-BAYER-2016-058025

PATIENT
  Age: 45 Year
  Sex: Male
  Weight: 80.27 kg

DRUGS (3)
  1. GADAVIST [Suspect]
     Active Substance: GADOBUTROL
     Indication: IMAGING PROCEDURE ABNORMAL
  2. GADAVIST [Suspect]
     Active Substance: GADOBUTROL
     Indication: NEOPLASM MALIGNANT
     Dosage: 7.5 ML, ONCE
     Route: 042
     Dates: start: 20160324, end: 20160324
  3. GADAVIST [Suspect]
     Active Substance: GADOBUTROL
     Indication: NUCLEAR MAGNETIC RESONANCE IMAGING

REACTIONS (6)
  - Chills [Not Recovered/Not Resolved]
  - Blood pressure increased [None]
  - Nausea [Not Recovered/Not Resolved]
  - Cold sweat [Not Recovered/Not Resolved]
  - Vomiting [Not Recovered/Not Resolved]
  - Malaise [None]

NARRATIVE: CASE EVENT DATE: 20160324
